FAERS Safety Report 9664813 (Version 2)
Quarter: 2013Q4

REPORT INFORMATION
  Report Type: Spontaneous
  Country: GB (occurrence: None)
  Receive Date: 20131101
  Receipt Date: 20131104
  Transmission Date: 20140711
  Serious: Yes (Hospitalization, Disabling)
  Sender: FDA-Public Use
  Company Number: AUR-APL-2013-08902

PATIENT
  Age: 12 Year
  Sex: Female
  Weight: 54 kg

DRUGS (3)
  1. MONTELUKAST (MONTELUKAST) [Suspect]
     Indication: ASTHMA
     Route: 048
     Dates: start: 20130925, end: 20131003
  2. BECLOMETHASONE DIPROPIONATE [Concomitant]
  3. SALBUTAMOL [Concomitant]

REACTIONS (4)
  - Ataxia [None]
  - Dysarthria [None]
  - Sensory loss [None]
  - Guillain-Barre syndrome [None]
